FAERS Safety Report 7803598-6 (Version None)
Quarter: 2011Q4

REPORT INFORMATION
  Report Type: 
  Country: None (occurrence: None)
  Receive Date: 20111009
  Receipt Date: 20111004
  Transmission Date: 20120403
  Serious: Yes (Hospitalization)
  Sender: FDA-Public Use
  Company Number: IT-BRISTOL-MYERS SQUIBB COMPANY-16138810

PATIENT
  Age: 70 Year
  Sex: Female

DRUGS (4)
  1. FUROSEMIDE [Concomitant]
  2. CORDARONE [Concomitant]
  3. COUMADIN [Suspect]
     Indication: ATRIAL FIBRILLATION
     Dosage: INTERRUPT ON 14SEP2011 2 UNIT OF COUMADIN 5MG ORAL TABS
     Route: 048
     Dates: start: 20110826
  4. BISOPROLOL [Concomitant]

REACTIONS (2)
  - INTERNATIONAL NORMALISED RATIO INCREASED [None]
  - DRUG ADMINISTRATION ERROR [None]
